FAERS Safety Report 6785726-7 (Version None)
Quarter: 2010Q2

REPORT INFORMATION
  Report Type: 
  Country: None (occurrence: None)
  Receive Date: 20100623
  Receipt Date: 20100618
  Transmission Date: 20101027
  Serious: Yes (Other)
  Sender: FDA-Public Use
  Company Number: PHHY2010US40464

PATIENT
  Sex: Female

DRUGS (6)
  1. EXTAVIA [Suspect]
     Indication: MULTIPLE SCLEROSIS
     Dosage: 0.187 MG, QOD
     Route: 058
     Dates: start: 20100508
  2. INSULIN [Concomitant]
     Dosage: UNK
  3. HUMALOG [Concomitant]
     Dosage: UNK
  4. KEPPRA [Concomitant]
     Dosage: 1000 MG, UNK
  5. TEGRETOL [Concomitant]
     Dosage: 200 MG, BID AND 400 MG QHS
  6. MULTI-VITAMINS [Concomitant]
     Dosage: UNK

REACTIONS (1)
  - SOMNOLENCE [None]
